FAERS Safety Report 7603280-4 (Version None)
Quarter: 2011Q3

REPORT INFORMATION
  Report Type: 
  Country: None (occurrence: None)
  Receive Date: 20110711
  Receipt Date: 20110711
  Transmission Date: 20111222
  Serious: Yes (Other)
  Sender: FDA-Public Use
  Company Number: None

PATIENT
  Sex: Female

DRUGS (1)
  1. CYCLOSET [Suspect]
     Indication: DIABETES MELLITUS
     Dosage: 0.8 MG TWICE/DAY BY MOUTH
     Route: 048
     Dates: start: 20110105, end: 20110518

REACTIONS (3)
  - FALL [None]
  - HERPES ZOSTER [None]
  - DYSKINESIA [None]
